FAERS Safety Report 22812451 (Version 2)
Quarter: 2024Q2

REPORT INFORMATION
  Report Type: Report from Study
  Country: US (occurrence: US)
  Receive Date: 20230811
  Receipt Date: 20240523
  Transmission Date: 20240716
  Serious: Yes (Hospitalization, Other)
  Sender: FDA-Public Use
  Company Number: US-ABBVIE-5360860

PATIENT
  Age: 71 Year
  Sex: Female

DRUGS (1)
  1. SKYRIZI [Suspect]
     Active Substance: RISANKIZUMAB-RZAA
     Indication: Psoriasis
     Route: 058
     Dates: start: 2021

REACTIONS (4)
  - Lower limb fracture [Recovering/Resolving]
  - Fall [Unknown]
  - Knee operation [Recovered/Resolved]
  - Rehabilitation therapy [Unknown]

NARRATIVE: CASE EVENT DATE: 20230701
